FAERS Safety Report 22694858 (Version 3)
Quarter: 2024Q2

REPORT INFORMATION
  Report Type: Spontaneous
  Country: US (occurrence: US)
  Receive Date: 20230712
  Receipt Date: 20240607
  Transmission Date: 20240716
  Serious: Yes (Other)
  Sender: FDA-Public Use
  Company Number: US-LUNDBECK-DKLU3064554

PATIENT
  Age: 26 Year
  Sex: Female

DRUGS (1)
  1. LEXAPRO [Suspect]
     Active Substance: ESCITALOPRAM OXALATE
     Indication: Anxiety
     Route: 065

REACTIONS (4)
  - Drug use disorder [Unknown]
  - Maternal exposure during pregnancy [Unknown]
  - Mood swings [Unknown]
  - Drug ineffective [Unknown]
